FAERS Safety Report 18349157 (Version 1)
Quarter: 2020Q4

REPORT INFORMATION
  Report Type: Spontaneous
  Country: US (occurrence: US)
  Receive Date: 20201006
  Receipt Date: 20201006
  Transmission Date: 20210114
  Serious: Yes (Other)
  Sender: FDA-Public Use
  Company Number: US-JNJFOC-20200945305

PATIENT

DRUGS (1)
  1. LISTERINE TOTAL CARE [Suspect]
     Active Substance: SODIUM FLUORIDE
     Indication: PRODUCT USED FOR UNKNOWN INDICATION
     Route: 048
     Dates: start: 2020

REACTIONS (1)
  - Application site thrombosis [Unknown]

NARRATIVE: CASE EVENT DATE: 2020
